FAERS Safety Report 16967783 (Version 1)
Quarter: 2019Q4

REPORT INFORMATION
  Report Type: Spontaneous
  Country: US (occurrence: US)
  Receive Date: 20191028
  Receipt Date: 20191028
  Transmission Date: 20200122
  Serious: Yes (Other)
  Sender: FDA-Public Use
  Company Number: US-NAPPMUNDI-GBR-2019-0071892

PATIENT
  Age: 40 Year
  Sex: Female

DRUGS (1)
  1. HYDROMORPHONE HYDROCHLORIDE. [Suspect]
     Active Substance: HYDROMORPHONE HYDROCHLORIDE
     Indication: PAIN
     Route: 042

REACTIONS (4)
  - Intentional product use issue [Unknown]
  - Drug use disorder [Unknown]
  - Granulomatosis with polyangiitis [Unknown]
  - Acute kidney injury [Unknown]
